FAERS Safety Report 23363965 (Version 3)
Quarter: 2024Q3

REPORT INFORMATION
  Report Type: Spontaneous
  Country: US (occurrence: US)
  Receive Date: 20240104
  Receipt Date: 20240827
  Transmission Date: 20241017
  Serious: No
  Sender: APOTEX
  Company Number: US-APOTEX-2023AP009940

PATIENT
  Sex: Male

DRUGS (3)
  1. ICOSAPENT ETHYL [Suspect]
     Active Substance: ICOSAPENT ETHYL
     Indication: Product used for unknown indication
     Dosage: 2 DOSAGE FORM, BID
     Route: 065
     Dates: start: 2023
  2. ICOSAPENT ETHYL [Suspect]
     Active Substance: ICOSAPENT ETHYL
     Dosage: 2 DOSAGE FORM, (2 AT MORNING AND 2 AT 1700 HOURS)
     Route: 065
  3. PANTOPRAZOLE [Concomitant]
     Active Substance: PANTOPRAZOLE
     Indication: Gastrooesophageal reflux disease
     Dosage: 40 MILLIGRAM, BID
     Route: 065

REACTIONS (11)
  - Eructation [Unknown]
  - Product after taste [Unknown]
  - Product colour issue [Unknown]
  - Product contamination physical [Unknown]
  - Product substitution issue [Unknown]
  - Poor quality product administered [Unknown]
  - Regurgitation [Unknown]
  - Product storage error [Unknown]
  - Dysgeusia [Unknown]
  - Product quality issue [Unknown]
  - Drug ineffective [Unknown]

NARRATIVE: CASE EVENT DATE: 20230101
